FAERS Safety Report 18203550 (Version 2)
Quarter: 2022Q3

REPORT INFORMATION
  Report Type: Other
  Country: DE (occurrence: DE)
  Receive Date: 20200827
  Receipt Date: 20220726
  Transmission Date: 20221026
  Serious: Yes (Hospitalization, Other)
  Sender: FDA-Public Use
  Company Number: DE-MACLEODS PHARMACEUTICALS US LTD-MAC2020027809

PATIENT

DRUGS (15)
  1. AMLODIPINE BESYLATE [Interacting]
     Active Substance: AMLODIPINE BESYLATE
     Indication: Hypertension
     Dosage: 10 MILLIGRAM, QD
     Route: 065
  2. VALSARTAN [Interacting]
     Active Substance: VALSARTAN
     Indication: Hypertension
     Dosage: 320 MILLIGRAM, QD
     Route: 065
  3. BISOPROLOL [Interacting]
     Active Substance: BISOPROLOL
     Indication: Hypertension
     Dosage: 10 MILLIGRAM, QD
     Route: 065
  4. RIFAMPIN [Interacting]
     Active Substance: RIFAMPIN
     Indication: Device related infection
     Dosage: UNK
     Route: 065
  5. RIFAMPIN [Interacting]
     Active Substance: RIFAMPIN
     Indication: Anti-infective therapy
  6. DOXAZOSIN [Interacting]
     Active Substance: DOXAZOSIN MESYLATE
     Indication: Hypertension
     Dosage: 16 MILLIGRAM, QD
     Route: 065
  7. Chlorthalidone/Chlortalidone [Concomitant]
     Indication: Hypertension
     Dosage: 25 MILLIGRAM, QD
     Route: 065
  8. MEROPENEM [Concomitant]
     Active Substance: MEROPENEM
     Indication: Device related infection
     Dosage: UNK
     Route: 065
  9. MEROPENEM [Concomitant]
     Active Substance: MEROPENEM
     Indication: Anti-infective therapy
  10. VANCOMYCIN [Concomitant]
     Active Substance: VANCOMYCIN
     Indication: Device related infection
     Dosage: UNK
     Route: 065
  11. VANCOMYCIN [Concomitant]
     Active Substance: VANCOMYCIN
     Indication: Anti-infective therapy
  12. DIHYDRALAZINE [Concomitant]
     Active Substance: DIHYDRALAZINE
     Indication: Hypertension
     Dosage: UNK
     Route: 065
  13. NITRENDIPINE [Concomitant]
     Active Substance: NITRENDIPINE
     Indication: Hypertension
     Dosage: UNK
     Route: 065
  14. CLONIDINE [Concomitant]
     Active Substance: CLONIDINE
     Indication: Hypertension
     Dosage: 175 MICROGRAM, QD
     Route: 065
  15. CLONIDINE [Concomitant]
     Active Substance: CLONIDINE
     Dosage: 475 MICROGRAM, QD
     Route: 065

REACTIONS (6)
  - Hypertensive crisis [Recovered/Resolved]
  - Condition aggravated [Recovered/Resolved]
  - Hypertension [Recovered/Resolved]
  - Off label use [Unknown]
  - Drug interaction [Recovered/Resolved]
  - Drug ineffective [Unknown]
